FAERS Safety Report 10243682 (Version 1)
Quarter: 2014Q2

REPORT INFORMATION
  Report Type: Spontaneous
  Country: FI (occurrence: None)
  Receive Date: 20140616
  Receipt Date: 20140616
  Transmission Date: 20141212
  Serious: Yes (Death, Other)
  Sender: FDA-Public Use
  Company Number: SYM-2014-22124

PATIENT
  Age: 77 Year
  Sex: Female

DRUGS (6)
  1. CHLORDIAZEPOXIDE (CHLORDIAZEPOXIDE) (CHLORDIAZEPOXIDE) [Suspect]
     Indication: PHYSICAL ASSAULT
  2. DESMETHYLDIAZEPAM [Suspect]
     Indication: PHYSICAL ASSAULT
  3. OXAZEPAM (OXAZEPAM) [Suspect]
     Indication: PHYSICAL ASSAULT
  4. PARACETAMOL (PARACETAMOL) [Concomitant]
  5. CARBAMAZEPINE (CARBAMAZEPINE) [Concomitant]
  6. MORPHINE (MORPHINE) [Concomitant]

REACTIONS (5)
  - Loss of consciousness [None]
  - Unresponsive to stimuli [None]
  - Dyspnoea [None]
  - Convulsion [None]
  - Toxicity to various agents [None]
